FAERS Safety Report 6019998-3 (Version None)
Quarter: 2008Q4

REPORT INFORMATION
  Report Type: 
  Country: None (occurrence: None)
  Receive Date: 20081226
  Receipt Date: 20081217
  Transmission Date: 20090506
  Serious: Yes (Hospitalization)
  Sender: FDA-Public Use
  Company Number: JP-RANBAXY-2008RR-20106

PATIENT
  Age: 82 Year
  Sex: Male

DRUGS (11)
  1. MELOXICAM [Suspect]
     Dosage: 10 MG, UNK
     Dates: start: 20070713, end: 20070731
  2. OMEPRAZOLE [Suspect]
     Dosage: 20 MG, QD
     Dates: start: 20070707, end: 20070724
  3. WARFARIN [Suspect]
     Indication: EMBOLISM
     Dosage: 3 MG, QD
     Dates: start: 20070314
  4. WARFARIN [Suspect]
     Dosage: 1 MG, QD
     Dates: start: 20070719
  5. WARFARIN [Suspect]
     Dosage: 2 MG, QD
     Dates: start: 20070724
  6. WARFARIN [Suspect]
     Dosage: 1.5 MG, QD
     Dates: start: 20070730, end: 20070731
  7. WARFARIN [Suspect]
     Dosage: 1 MG, QD
     Dates: start: 20070802
  8. S-1 [Suspect]
     Dosage: 80 MG, QD
     Dates: start: 20070521
  9. GEMCITABINE [Concomitant]
  10. VITAMIN K TAB [Concomitant]
  11. HEPARIN [Concomitant]
     Dosage: UNK
     Dates: start: 20070713, end: 20070726

REACTIONS (3)
  - COAGULOPATHY [None]
  - HAEMATURIA [None]
  - HAEMORRHAGE [None]
